FAERS Safety Report 5089989-8 (Version None)
Quarter: 2006Q3

REPORT INFORMATION
  Report Type: 
  Country: None (occurrence: None)
  Receive Date: 20060823
  Receipt Date: 20060810
  Transmission Date: 20061208
  Serious: Yes (Death, Other)
  Sender: FDA-Public Use
  Company Number: 2004106702

PATIENT
  Age: 35 Year
  Sex: Male
  Weight: 74.3899 kg

DRUGS (19)
  1. NEURONTIN [Suspect]
     Indication: MUSCLE SPASMS
     Dosage: 900 MG (300 MG, 3 IN 1 )
  2. ACETAMINOPHEN [Suspect]
     Indication: ILL-DEFINED DISORDER
  3. HYDROCODONE (HYDROCODONE) [Suspect]
     Indication: ILL-DEFINED DISORDER
     Dates: start: 20000601
  4. ULTRAM [Suspect]
     Indication: ILL-DEFINED DISORDER
     Dosage: DAILY
  5. MEPROBAMATE [Suspect]
     Indication: ILL-DEFINED DISORDER
  6. CARISOPRODOL [Suspect]
     Indication: ILL-DEFINED DISORDER
     Dates: start: 20000720
  7. ETHANOL (ETHANOL) [Concomitant]
  8. OXYCODONE (OXYCODONE) [Concomitant]
  9. PROMETHAZINE [Concomitant]
  10. SKELAXIN [Concomitant]
  11. CATAFLAM [Concomitant]
  12. DARVOCET (DEXTROPROPOXYPHENE NAPSILATE, PARAETAMOL) [Concomitant]
  13. VIOXX [Concomitant]
  14. TETRACYCLINE [Concomitant]
  15. ZOVIRAX [Concomitant]
  16. BACLOFEN [Concomitant]
  17. ZANAFLEX [Concomitant]
  18. VIAGRA [Concomitant]
  19. LORCET-HD [Concomitant]

REACTIONS (20)
  - ACTIVITIES OF DAILY LIVING IMPAIRED [None]
  - ATROPHY [None]
  - CELLULITIS [None]
  - COMPLETED SUICIDE [None]
  - DEPRESSION [None]
  - DRUG INEFFECTIVE [None]
  - DRUG TOXICITY [None]
  - ERECTILE DYSFUNCTION [None]
  - FAECAL INCONTINENCE [None]
  - INJURY [None]
  - INSOMNIA [None]
  - INTERVERTEBRAL DISC PROTRUSION [None]
  - INTERVERTEBRAL DISC SPACE NARROWING [None]
  - MUSCULOSKELETAL PAIN [None]
  - NECK PAIN [None]
  - PULMONARY CONGESTION [None]
  - PULMONARY OEDEMA [None]
  - SPINAL OSTEOARTHRITIS [None]
  - SUICIDAL IDEATION [None]
  - URINARY INCONTINENCE [None]
